FAERS Safety Report 4547080-0 (Version None)
Quarter: 2005Q1

REPORT INFORMATION
  Report Type: 
  Country: None (occurrence: None)
  Receive Date: 20050105
  Receipt Date: 20041216
  Transmission Date: 20050727
  Serious: Yes (Hospitalization, Other)
  Sender: FDA-Public Use
  Company Number: EM2004-0523

PATIENT
  Age: 61 Year
  Sex: Male

DRUGS (5)
  1. PROLEUKIN [Suspect]
     Indication: MALIGNANT MELANOMA
     Dosage: 3 MU/M2, QD, SUBCUTANEOUS
     Route: 058
     Dates: start: 20001101, end: 20001123
  2. MELANOMA PEPTIDE VACCINE [Concomitant]
  3. MULTIPLE VITAMINS (ASCORBIC ACID, ERGOCALCIFEROL, FOLIC ACID, RETINOL, [Concomitant]
  4. CALCIUM GLUCONATE [Concomitant]
  5. ASPIRIN [Concomitant]

REACTIONS (11)
  - ABNORMAL CLOTTING FACTOR [None]
  - BRAIN NEOPLASM MALIGNANT [None]
  - CEREBRAL INFARCTION [None]
  - CEREBRAL ISCHAEMIA [None]
  - CEREBROVASCULAR ACCIDENT [None]
  - DEMYELINATION [None]
  - GAIT DISTURBANCE [None]
  - HEMIPARESIS [None]
  - METASTASES TO CENTRAL NERVOUS SYSTEM [None]
  - METASTATIC MALIGNANT MELANOMA [None]
  - SCAN BONE MARROW ABNORMAL [None]
